FAERS Safety Report 6073475-2 (Version None)
Quarter: 2009Q1

REPORT INFORMATION
  Report Type: 
  Country: None (occurrence: None)
  Receive Date: 20090211
  Receipt Date: 20090109
  Transmission Date: 20090719
  Serious: No
  Sender: FDA-Public Use
  Company Number: US-BAYER-200910663NA

PATIENT
  Age: 26 Year
  Sex: Female

DRUGS (1)
  1. MIRENA [Suspect]
     Indication: CONTRACEPTION
     Route: 015
     Dates: start: 20071001, end: 20090107

REACTIONS (10)
  - ACNE [None]
  - AMENORRHOEA [None]
  - BREAST TENDERNESS [None]
  - DYSPAREUNIA [None]
  - HEADACHE [None]
  - POST PROCEDURAL HAEMORRHAGE [None]
  - PROCEDURAL PAIN [None]
  - VAGINAL DISCHARGE [None]
  - VAGINAL ODOUR [None]
  - VULVOVAGINAL DRYNESS [None]
